FAERS Safety Report 4873051-0 (Version None)
Quarter: 2006Q1

REPORT INFORMATION
  Report Type: 
  Country: None (occurrence: None)
  Receive Date: 20060105
  Receipt Date: 20051209
  Transmission Date: 20060701
  Serious: Yes (Other)
  Sender: FDA-Public Use
  Company Number: CA-BRISTOL-MYERS SQUIBB COMPANY-13217492

PATIENT
  Age: 84 Year
  Sex: Female

DRUGS (15)
  1. TEQUIN [Suspect]
     Route: 048
  2. ALTACE [Concomitant]
  3. CALCIUM + VITAMIN D [Concomitant]
  4. COUMADIN [Concomitant]
  5. DIABETA [Concomitant]
  6. FLOVENT [Concomitant]
  7. FOSAMAX [Concomitant]
  8. GLUCOPHAGE [Concomitant]
  9. IRON [Concomitant]
  10. LIPITOR [Concomitant]
     Route: 048
  11. LOSEC [Concomitant]
     Route: 048
  12. MIACALCIN [Concomitant]
  13. SALBUTAMOL [Concomitant]
  14. SYNTHROID [Concomitant]
  15. TYLENOL [Concomitant]

REACTIONS (1)
  - HYPOGLYCAEMIA [None]
